FAERS Safety Report 18282895 (Version 1)
Quarter: 2020Q3

REPORT INFORMATION
  Report Type: Spontaneous
  Country: FI (occurrence: FI)
  Receive Date: 20200918
  Receipt Date: 20200918
  Transmission Date: 20201103
  Serious: Yes (Other)
  Sender: FDA-Public Use
  Company Number: FI-MYLANLABS-2020M1058460

PATIENT
  Age: 63 Year
  Sex: Female

DRUGS (3)
  1. LEPONEX (CLOZAPINE) TABLET [Suspect]
     Active Substance: CLOZAPINE
     Indication: SCHIZOPHRENIA
     Dosage: 1 DOSE (100 MG EVENING DOSE) ONCE PER DAY
     Route: 048
     Dates: start: 20200512, end: 20200611
  2. LEPONEX [Suspect]
     Active Substance: CLOZAPINE
     Indication: SCHIZOPHRENIA
     Dosage: STARTING DOSE 25 MG PER DAY
     Route: 048
     Dates: start: 20200512, end: 2020
  3. RISPERIDONE. [Suspect]
     Active Substance: RISPERIDONE
     Indication: SCHIZOPHRENIA
     Dosage: 4 MILLIGRAM, QD

REACTIONS (4)
  - Fall [Unknown]
  - White blood cell count decreased [Not Recovered/Not Resolved]
  - Parkinsonism [Unknown]
  - Granulocytopenia [Not Recovered/Not Resolved]

NARRATIVE: CASE EVENT DATE: 20200609
